FAERS Safety Report 16057243 (Version 1)
Quarter: 2019Q1

REPORT INFORMATION
  Report Type: Spontaneous
  Country: US (occurrence: US)
  Receive Date: 20190311
  Receipt Date: 20190311
  Transmission Date: 20190418
  Serious: No
  Sender: FDA-Public Use
  Company Number: US-PFIZER INC-2019094492

PATIENT
  Sex: Female

DRUGS (1)
  1. PREMPRO [Suspect]
     Active Substance: ESTROGENS, CONJUGATED\MEDROXYPROGESTERONE ACETATE
     Dosage: UNK [ESTROGENS CONJUGATED: 0.625MG]/ [MEDROXYPROGESTERONE ACETATE: 2.5 MG]

REACTIONS (3)
  - Migraine [Unknown]
  - Product dispensing error [Unknown]
  - Incorrect dosage administered [Unknown]
